FAERS Safety Report 8261379-6 (Version None)
Quarter: 2012Q2

REPORT INFORMATION
  Report Type: 
  Country: None (occurrence: None)
  Receive Date: 20120405
  Receipt Date: 20120329
  Transmission Date: 20120825
  Serious: Yes (Other)
  Sender: FDA-Public Use
  Company Number: US-PFIZER INC-2012068956

PATIENT
  Sex: Male
  Weight: 189 kg

DRUGS (2)
  1. LYRICA [Suspect]
     Indication: INTERVERTEBRAL DISC PROTRUSION
     Dosage: 200 MG, 3X/DAY
     Route: 048
     Dates: start: 19870101
  2. LYRICA [Suspect]
     Dosage: 200 MG, UNK

REACTIONS (7)
  - CONFUSIONAL STATE [None]
  - PAIN [None]
  - BLOOD PRESSURE FLUCTUATION [None]
  - INSOMNIA [None]
  - ARTHROPATHY [None]
  - DIABETES MELLITUS [None]
  - DRUG ADMINISTRATION ERROR [None]
